FAERS Safety Report 25903165 (Version 1)
Quarter: 2025Q4

REPORT INFORMATION
  Report Type: Spontaneous
  Country: EU (occurrence: EU)
  Receive Date: 20251009
  Receipt Date: 20251009
  Transmission Date: 20260117
  Serious: Yes (Other)
  Sender: MYLAN
  Company Number: None

PATIENT
  Age: 16 Year
  Sex: Female

DRUGS (4)
  1. ZOLOFT [Suspect]
     Active Substance: SERTRALINE HYDROCHLORIDE
     Indication: Product used for unknown indication
     Dosage: 1600 MILLIGRAM, QD
     Dates: start: 20250815, end: 20250815
  2. ZOLOFT [Suspect]
     Active Substance: SERTRALINE HYDROCHLORIDE
     Dosage: 1600 MILLIGRAM, QD
     Route: 048
     Dates: start: 20250815, end: 20250815
  3. ZOLOFT [Suspect]
     Active Substance: SERTRALINE HYDROCHLORIDE
     Dosage: 1600 MILLIGRAM, QD
     Route: 048
     Dates: start: 20250815, end: 20250815
  4. ZOLOFT [Suspect]
     Active Substance: SERTRALINE HYDROCHLORIDE
     Dosage: 1600 MILLIGRAM, QD
     Dates: start: 20250815, end: 20250815

REACTIONS (3)
  - Suicide attempt [Unknown]
  - Sluggishness [Unknown]
  - Intentional overdose [Unknown]

NARRATIVE: CASE EVENT DATE: 20250815
